FAERS Safety Report 4361344-5 (Version None)
Quarter: 2004Q2

REPORT INFORMATION
  Report Type: 
  Country: None (occurrence: None)
  Receive Date: 20040521
  Receipt Date: 20040330
  Transmission Date: 20050107
  Serious: Yes (Disabling)
  Sender: FDA-Public Use
  Company Number: PHBS2004JP04437

PATIENT
  Age: 21 Year
  Sex: Female
  Weight: 40 kg

DRUGS (3)
  1. VOLTAREN [Suspect]
     Indication: PYREXIA
     Dosage: 50 MG/DAY
     Route: 054
     Dates: start: 19980120, end: 19980715
  2. LOXONIN [Suspect]
     Indication: PYREXIA
     Dosage: 60 MG/DAY
     Route: 048
     Dates: start: 19980126, end: 19980715
  3. PREDONINE [Concomitant]
     Dosage: 30 MG/DAY
     Route: 048
     Dates: start: 19980223

REACTIONS (11)
  - CUTANEOUS LUPUS ERYTHEMATOSUS [None]
  - ERYTHEMA MULTIFORME [None]
  - EYE PAIN [None]
  - GENITAL ULCERATION [None]
  - KERATOCONJUNCTIVITIS SICCA [None]
  - OCULOMUCOCUTANEOUS SYNDROME [None]
  - PHARYNGOLARYNGEAL PAIN [None]
  - PYREXIA [None]
  - SJOGREN'S SYNDROME [None]
  - STEVENS-JOHNSON SYNDROME [None]
  - VISUAL ACUITY REDUCED [None]
